FAERS Safety Report 18391769 (Version 1)
Quarter: 2020Q4

REPORT INFORMATION
  Report Type: Spontaneous
  Country: US (occurrence: US)
  Receive Date: 20201015
  Receipt Date: 20201015
  Transmission Date: 20210114
  Serious: No
  Sender: FDA-Public Use
  Company Number: None

PATIENT
  Age: 36 Year
  Sex: Female
  Weight: 61.23 kg

DRUGS (5)
  1. ADDERALL [Concomitant]
     Active Substance: AMPHETAMINE ASPARTATE\AMPHETAMINE SULFATE\DEXTROAMPHETAMINE SACCHARATE\DEXTROAMPHETAMINE SULFATE
  2. MESH (UMBILICAL HERNIA) [Concomitant]
  3. VITAMIN D3 [Concomitant]
     Active Substance: CHOLECALCIFEROL
  4. LILETTA [Suspect]
     Active Substance: LEVONORGESTREL
     Dates: start: 20200318, end: 20201008
  5. MULTIVITAMIN [Concomitant]
     Active Substance: VITAMINS

REACTIONS (9)
  - Illness [None]
  - Haemorrhage [None]
  - Alopecia [None]
  - Pain [None]
  - Abdominal pain [None]
  - Complication associated with device [None]
  - Bacterial vaginosis [None]
  - Fungal infection [None]
  - Medical device pain [None]
